FAERS Safety Report 11445474 (Version 1)
Quarter: 2015Q3

REPORT INFORMATION
  Report Type: Spontaneous
  Country: US (occurrence: None)
  Receive Date: 20150901
  Receipt Date: 20150901
  Transmission Date: 20151125
  Serious: Yes (Other)
  Sender: FDA-Public Use
  Company Number: None

PATIENT
  Age: 50 Year
  Sex: Female
  Weight: 124.74 kg

DRUGS (6)
  1. PRAMPEXOLE [Concomitant]
  2. WELLBUTRIN XL [Concomitant]
     Active Substance: BUPROPION HYDROCHLORIDE
  3. OMEPROZOLE [Concomitant]
     Active Substance: OMEPRAZOLE
  4. SAXENDA [Suspect]
     Active Substance: LIRAGLUTIDE
     Indication: WEIGHT DECREASED
     Route: 058
     Dates: start: 20150608, end: 20150619
  5. HYPDROCHLOROTHIZIDE [Concomitant]
  6. IRON [Concomitant]
     Active Substance: IRON

REACTIONS (3)
  - Malaise [None]
  - Asthenia [None]
  - Glomerular filtration rate decreased [None]

NARRATIVE: CASE EVENT DATE: 20150826
